FAERS Safety Report 4818414-4 (Version None)
Quarter: 2005Q4

REPORT INFORMATION
  Report Type: 
  Country: None (occurrence: None)
  Receive Date: 20051102
  Receipt Date: 20050719
  Transmission Date: 20060501
  Serious: Yes (Other)
  Sender: FDA-Public Use
  Company Number: PHNU2005DE02598

PATIENT
  Age: 61 Year
  Sex: Male
  Weight: 102 kg

DRUGS (10)
  1. ZOMETA [Suspect]
     Indication: MULTIPLE MYELOMA
     Dosage: 4 MG, QMO
     Route: 042
     Dates: start: 20030501, end: 20050701
  2. PANTOZOL [Concomitant]
     Dosage: 40 MG, QD
     Route: 048
     Dates: start: 20050401, end: 20051001
  3. NORVASC [Concomitant]
     Indication: HYPERTENSION
     Dosage: 5 MG, QD
     Route: 048
  4. UNAT [Concomitant]
     Indication: HYPERTENSION
     Dosage: 10 MG, QD
     Route: 048
     Dates: start: 20050401
  5. BELOC-ZOK [Concomitant]
     Indication: HYPERTENSION
     Dosage: 100 MG, QD
     Route: 048
     Dates: start: 20020401
  6. MIRTAZAPINE [Concomitant]
     Indication: DEPRESSION
     Dosage: 15 MG, QD
     Route: 048
     Dates: end: 20050701
  7. METFORMIN HCL [Concomitant]
     Indication: DIABETES MELLITUS INSULIN-DEPENDENT
     Dosage: 850 MG, QD
     Route: 048
     Dates: start: 20020101
  8. PROTAPHAN [Concomitant]
     Indication: DIABETES MELLITUS INSULIN-DEPENDENT
     Route: 048
     Dates: start: 20050301
  9. ACTRAPID HUMAN [Concomitant]
     Indication: DIABETES MELLITUS INSULIN-DEPENDENT
     Route: 065
     Dates: start: 20020101
  10. VINCRISTINE + ADRIAMYCIN + DEXAMETHASONE [Concomitant]
     Indication: PLASMACYTOMA
     Dosage: 4 CYCLES
     Route: 065
     Dates: start: 20041129, end: 20050224

REACTIONS (4)
  - JAW OPERATION [None]
  - OSTEONECROSIS [None]
  - PERIODONTITIS [None]
  - TOOTH EXTRACTION [None]
